FAERS Safety Report 13425810 (Version 2)
Quarter: 2017Q3

REPORT INFORMATION
  Report Type: Spontaneous
  Country: US (occurrence: US)
  Receive Date: 20170411
  Receipt Date: 20170922
  Transmission Date: 20171127
  Serious: No
  Sender: FDA-Public Use
  Company Number: US-JNJFOC-20070502133

PATIENT
  Age: 53 Year
  Sex: Male
  Weight: 92.99 kg

DRUGS (1)
  1. FENTANYL TRANSDERMAL SYSTEM [Suspect]
     Active Substance: FENTANYL
     Indication: ILL-DEFINED DISORDER
     Route: 062
     Dates: start: 200603

REACTIONS (13)
  - Application site pruritus [Recovered/Resolved]
  - Pain [Recovered/Resolved]
  - Pyrexia [Unknown]
  - Bladder pain [Unknown]
  - Application site vesicles [Recovered/Resolved]
  - Overdose [Unknown]
  - Vomiting [Unknown]
  - Diarrhoea [Unknown]
  - Night sweats [Unknown]
  - Malaise [Unknown]
  - Device malfunction [Unknown]
  - Application site pain [Recovered/Resolved]
  - Incorrect dose administered [Unknown]

NARRATIVE: CASE EVENT DATE: 200704
